FAERS Safety Report 6121033-3 (Version None)
Quarter: 2009Q1

REPORT INFORMATION
  Report Type: 
  Country: None (occurrence: None)
  Receive Date: 20090317
  Receipt Date: 20090310
  Transmission Date: 20090719
  Serious: Yes (Hospitalization)
  Sender: FDA-Public Use
  Company Number: PHHY2009JP06092

PATIENT
  Sex: Male
  Weight: 56 kg

DRUGS (1)
  1. DIOVAN [Suspect]
     Dosage: 80 MG, QD
     Route: 048
     Dates: start: 20080207, end: 20080320

REACTIONS (2)
  - CHEST X-RAY ABNORMAL [None]
  - LUNG NEOPLASM MALIGNANT [None]
